FAERS Safety Report 9842329 (Version 4)
Quarter: 2015Q1

REPORT INFORMATION
  Report Type: Spontaneous
  Country: US (occurrence: US)
  Receive Date: 20140124
  Receipt Date: 20150320
  Transmission Date: 20150721
  Serious: Yes (Life-Threatening, Congenital Anomaly, Other)
  Sender: FDA-Public Use
  Company Number: US-PFIZER INC-2014020987

PATIENT
  Sex: Male

DRUGS (12)
  1. ALBUTEROL. [Concomitant]
     Active Substance: ALBUTEROL
     Dosage: 2 DF (2 PUFFS) FOR EVERY 4 TO 6 HOURS
     Route: 064
     Dates: start: 20030224, end: 20040223
  2. EFFEXOR [Suspect]
     Active Substance: VENLAFAXINE HYDROCHLORIDE
     Indication: DEPRESSION
     Dosage: 75 -150 MG, DAILY
     Route: 064
     Dates: start: 20021122, end: 2006
  3. EFFEXOR [Suspect]
     Active Substance: VENLAFAXINE HYDROCHLORIDE
     Indication: ANXIETY
  4. EFFEXOR XR [Suspect]
     Active Substance: VENLAFAXINE HYDROCHLORIDE
     Dosage: 225 MG, 1X/DAY (THREE CAPSULES EVERY MORNING)
     Route: 064
     Dates: start: 20030214, end: 20030618
  5. GUAIFENEX LA [Concomitant]
     Active Substance: GUAIFENESIN
     Dosage: 1 DF, 2X/DAY (EVERY 12 HOURS) AS NEEDED
     Route: 064
     Dates: start: 20030224, end: 20040223
  6. EFFEXOR XR [Suspect]
     Active Substance: VENLAFAXINE HYDROCHLORIDE
     Dosage: 150 MG, 1X/DAY (EVERY MORNING)
     Route: 064
     Dates: start: 20030619, end: 20041001
  7. NAPROSYN [Concomitant]
     Active Substance: NAPROXEN
     Dosage: 500 MG, 2X/DAY
     Route: 064
     Dates: start: 20030225, end: 20040224
  8. TRIVORA 28 [Concomitant]
     Dosage: 1 DF, DAILY
     Route: 064
     Dates: start: 20020402, end: 20030401
  9. CIPRO [Concomitant]
     Active Substance: CIPROFLOXACIN HYDROCHLORIDE
     Dosage: 500 MG, 2X/DAY
     Route: 064
     Dates: start: 20030225, end: 20040224
  10. YASMIN [Concomitant]
     Active Substance: DROSPIRENONE\ETHINYL ESTRADIOL
     Dosage: 1 DF, DAILY
     Route: 064
     Dates: start: 20030215, end: 20040214
  11. ZITHROMAX [Concomitant]
     Active Substance: AZITHROMYCIN DIHYDRATE
     Dosage: 250 MG, UNK, AS DIRECTED
     Route: 064
     Dates: start: 20030224, end: 20040223
  12. PRENATAL VITAMINS [Concomitant]
     Active Substance: VITAMINS
     Dosage: UNK
     Route: 064

REACTIONS (4)
  - Maternal exposure during pregnancy [Unknown]
  - Bicuspid aortic valve [Unknown]
  - Aortic dilatation [Unknown]
  - Aortic stenosis [Unknown]

NARRATIVE: CASE EVENT DATE: 20040114
